FAERS Safety Report 5162250-9 (Version None)
Quarter: 2006Q4

REPORT INFORMATION
  Report Type: 
  Country: None (occurrence: None)
  Receive Date: 20061121
  Receipt Date: 20061114
  Transmission Date: 20070319
  Serious: Yes (Hospitalization, Other)
  Sender: FDA-Public Use
  Company Number: HQWYE688227OCT06

PATIENT
  Age: 51 Year
  Sex: Female

DRUGS (1)
  1. PREMARIN [Suspect]
     Indication: MENOPAUSAL SYMPTOMS
     Dates: start: 19750101, end: 19800101

REACTIONS (5)
  - ANGER [None]
  - BREAST CANCER METASTATIC [None]
  - DEVICE BREAKAGE [None]
  - IMPLANT SITE REACTION [None]
  - SURGERY [None]
